FAERS Safety Report 11050646 (Version 1)
Quarter: 2015Q2

REPORT INFORMATION
  Report Type: Spontaneous
  Country: US (occurrence: US)
  Receive Date: 20150421
  Receipt Date: 20150421
  Transmission Date: 20150821
  Serious: No
  Sender: FDA-Public Use
  Company Number: US-LEO PHARMA-233296

PATIENT
  Age: 37 Year

DRUGS (1)
  1. PICATO [Suspect]
     Active Substance: INGENOL MEBUTATE
     Indication: ACTINIC KERATOSIS
     Dates: start: 20140905, end: 20140907

REACTIONS (4)
  - Application site pain [Unknown]
  - Application site reaction [Unknown]
  - Application site swelling [Unknown]
  - Application site vesicles [Unknown]

NARRATIVE: CASE EVENT DATE: 20140906
